FAERS Safety Report 6051978-4 (Version None)
Quarter: 2009Q1

REPORT INFORMATION
  Report Type: 
  Country: None (occurrence: None)
  Receive Date: 20090121
  Receipt Date: 20090121
  Transmission Date: 20090719
  Serious: Yes (Death)
  Sender: FDA-Public Use
  Company Number: None

PATIENT
  Age: 47 Year
  Sex: Male
  Weight: 90.7194 kg

DRUGS (3)
  1. MORPHINE SULFATE [Suspect]
     Indication: FALL
     Dosage: 30 MG 3 PER DAY NCPDP 3435143
     Dates: start: 20010101, end: 20070101
  2. MORPHINE SULFATE [Suspect]
     Indication: PAIN
     Dosage: 30 MG 3 PER DAY NCPDP 3435143
     Dates: start: 20010101, end: 20070101
  3. MORPHINE SULFATE [Suspect]

REACTIONS (2)
  - ACCIDENTAL DEATH [None]
  - THERAPEUTIC AGENT TOXICITY [None]
